FAERS Safety Report 17433705 (Version 9)
Quarter: 2025Q4

REPORT INFORMATION
  Report Type: Report from Study
  Country: US (occurrence: US)
  Receive Date: 20200219
  Receipt Date: 20251211
  Transmission Date: 20260118
  Serious: Yes (Hospitalization, Disabling, Other)
  Sender: TAKEDA
  Company Number: US-SHIRE-US202006286

PATIENT
  Age: 46 Year
  Sex: Male

DRUGS (8)
  1. HUMAN C1-ESTERASE INHIBITOR [Suspect]
     Active Substance: HUMAN C1-ESTERASE INHIBITOR
     Indication: Hereditary angioedema
     Dosage: 1500 INTERNATIONAL UNIT
  2. HUMAN C1-ESTERASE INHIBITOR [Suspect]
     Active Substance: HUMAN C1-ESTERASE INHIBITOR
     Indication: Prophylaxis
     Dosage: UNK
  3. HUMAN C1-ESTERASE INHIBITOR [Suspect]
     Active Substance: HUMAN C1-ESTERASE INHIBITOR
     Dosage: UNK
  4. HUMAN C1-ESTERASE INHIBITOR [Suspect]
     Active Substance: HUMAN C1-ESTERASE INHIBITOR
     Dosage: 1000 INTERNATIONAL UNIT
  5. KALBITOR [Suspect]
     Active Substance: ECALLANTIDE
     Indication: Hereditary angioedema
     Dosage: 3 MILLILITER
  6. KALBITOR [Suspect]
     Active Substance: ECALLANTIDE
     Dosage: UNK
  7. KALBITOR [Suspect]
     Active Substance: ECALLANTIDE
     Dosage: 30 MILLIGRAM
  8. TAKHZYRO [Suspect]
     Active Substance: LANADELUMAB-FLYO
     Indication: Prophylaxis
     Dosage: 300 MILLIGRAM, Q2WEEKS

REACTIONS (15)
  - Pneumonia [Unknown]
  - Staphylococcal infection [Recovered/Resolved]
  - Stress [Recovered/Resolved]
  - COVID-19 [Recovered/Resolved]
  - Nerve compression [Unknown]
  - Hereditary angioedema [Recovered/Resolved]
  - Influenza [Recovered/Resolved]
  - Epicondylitis [Not Recovered/Not Resolved]
  - Prescribed overdose [Unknown]
  - Blood iron decreased [Unknown]
  - Device occlusion [Unknown]
  - Neuralgia [Unknown]
  - Hypoaesthesia [Unknown]
  - Carpal tunnel syndrome [Unknown]
  - Product distribution issue [Unknown]

NARRATIVE: CASE EVENT DATE: 20231001
